FAERS Safety Report 16039359 (Version 3)
Quarter: 2019Q1

REPORT INFORMATION
  Report Type: Report from Study
  Country: None (occurrence: ES)
  Receive Date: 20190306
  Receipt Date: 20190319
  Transmission Date: 20190418
  Serious: Yes (Hospitalization)
  Sender: FDA-Public Use
  Company Number: ES-ABBVIE-19S-144-2685702-00

PATIENT
  Age: 80 Year
  Sex: Female
  Weight: 45 kg

DRUGS (1)
  1. DUODOPA [Suspect]
     Active Substance: CARBIDOPA\LEVODOPA
     Indication: PARKINSON^S DISEASE
     Route: 050
     Dates: start: 20160517

REACTIONS (8)
  - Fall [Recovered/Resolved]
  - Device issue [Unknown]
  - Depressed mood [Unknown]
  - Pelvic fracture [Unknown]
  - Pelvic pain [Unknown]
  - Device leakage [Unknown]
  - Psychiatric symptom [Unknown]
  - Gait inability [Unknown]

NARRATIVE: CASE EVENT DATE: 201902
